FAERS Safety Report 23612615 (Version 2)
Quarter: 2024Q2

REPORT INFORMATION
  Report Type: Spontaneous
  Country: US (occurrence: US)
  Receive Date: 20240308
  Receipt Date: 20240422
  Transmission Date: 20240716
  Serious: Yes (Life-Threatening, Hospitalization, Other)
  Sender: FDA-Public Use
  Company Number: US-MYLANLABS-2020423807

PATIENT
  Age: 64 Year
  Sex: Female

DRUGS (2)
  1. LYRICA [Suspect]
     Active Substance: PREGABALIN
     Indication: Product used for unknown indication
     Dosage: UNK
     Route: 065
  2. DICLOFENAC [Suspect]
     Active Substance: DICLOFENAC
     Indication: Product used for unknown indication
     Dosage: UNK
     Route: 065

REACTIONS (28)
  - Cerebrovascular accident [Not Recovered/Not Resolved]
  - Cardiac septal defect [Unknown]
  - Cardiac disorder [Not Recovered/Not Resolved]
  - Diarrhoea [Unknown]
  - Nasopharyngitis [Unknown]
  - Cough [Unknown]
  - Illness [Unknown]
  - Arthralgia [Not Recovered/Not Resolved]
  - Pain in extremity [Not Recovered/Not Resolved]
  - Vertigo [Not Recovered/Not Resolved]
  - Dyspnoea [Not Recovered/Not Resolved]
  - Vomiting [Unknown]
  - Abdominal pain upper [Recovered/Resolved]
  - Constipation [Unknown]
  - Foot fracture [Unknown]
  - Fatigue [Unknown]
  - Gastrointestinal disorder [Unknown]
  - Hunger [Unknown]
  - Insomnia [Unknown]
  - Somnolence [Unknown]
  - Weight increased [Unknown]
  - Dry throat [Unknown]
  - Asthenia [Unknown]
  - Decreased appetite [Unknown]
  - Dyspnoea exertional [Unknown]
  - No adverse event [Recovered/Resolved]
  - Abdominal discomfort [Unknown]
  - Product dose omission issue [Unknown]

NARRATIVE: CASE EVENT DATE: 20220201
